FAERS Safety Report 22099280 (Version 2)
Quarter: 2023Q2

REPORT INFORMATION
  Report Type: Spontaneous
  Country: JP (occurrence: JP)
  Receive Date: 20230315
  Receipt Date: 20230526
  Transmission Date: 20230722
  Serious: Yes (Hospitalization, Other)
  Sender: FDA-Public Use
  Company Number: JP-AMGEN-JPNSP2023041319

PATIENT
  Age: 74 Year
  Sex: Male
  Weight: 45 kg

DRUGS (6)
  1. LUMAKRAS [Suspect]
     Active Substance: SOTORASIB
     Indication: Non-small cell lung cancer
     Dosage: 960 MILLIGRAM
     Route: 048
     Dates: start: 20230228, end: 20230305
  2. LUMAKRAS [Suspect]
     Active Substance: SOTORASIB
     Indication: K-ras gene mutation
     Dosage: UNK
     Route: 048
     Dates: start: 20230330
  3. ANAMORELIN HYDROCHLORIDE [Concomitant]
     Active Substance: ANAMORELIN HYDROCHLORIDE
     Indication: Cachexia
     Dosage: 100 MILLIGRAM, QD
     Dates: start: 20221031, end: 20230305
  4. ELIQUIS [Concomitant]
     Active Substance: APIXABAN
     Indication: Atrial fibrillation
     Dosage: 2.5 MILLIGRAM, BID
  5. ROSUVASTATIN [Concomitant]
     Active Substance: ROSUVASTATIN
     Indication: Dyslipidaemia
     Dosage: 2.5 MILLIGRAM, QD
     Dates: end: 20230305
  6. CORTRIL [Concomitant]
     Active Substance: HYDROCORTISONE
     Indication: Secondary adrenocortical insufficiency
     Dosage: 10 MILLIGRAM, QD
     Dates: start: 20230123, end: 20230305

REACTIONS (1)
  - Meningitis bacterial [Recovered/Resolved]

NARRATIVE: CASE EVENT DATE: 20230306
